FAERS Safety Report 9028026 (Version 1)
Quarter: 2013Q1

REPORT INFORMATION
  Report Type: Report from Study
  Country: BR (occurrence: BR)
  Receive Date: 20130123
  Receipt Date: 20130123
  Transmission Date: 20140127
  Serious: Yes (Other)
  Sender: FDA-Public Use
  Company Number: BR-ROCHE-1181868

PATIENT
  Sex: Female
  Weight: 74 kg

DRUGS (2)
  1. MABTHERA [Suspect]
     Indication: PRODUCT USED FOR UNKNOWN INDICATION
     Route: 042
     Dates: start: 20120501
  2. PREDNISONE [Concomitant]

REACTIONS (3)
  - Abdominal hernia [Not Recovered/Not Resolved]
  - Anaemia [Not Recovered/Not Resolved]
  - Arthropathy [Unknown]
